FAERS Safety Report 24263839 (Version 1)
Quarter: 2024Q3

REPORT INFORMATION
  Report Type: Spontaneous
  Country: GB (occurrence: GB)
  Receive Date: 20240829
  Receipt Date: 20240829
  Transmission Date: 20241017
  Serious: Yes (Disabling)
  Sender: TEVA
  Company Number: GB-MHRA-TPP17761064C9489811YC1724084081235

PATIENT
  Age: 70 Year
  Sex: Female
  Weight: 66 kg

DRUGS (17)
  1. MONTELUKAST [Suspect]
     Active Substance: MONTELUKAST SODIUM
     Indication: Ill-defined disorder
     Dosage: AT NIGHT
     Route: 065
     Dates: start: 20240626, end: 20240724
  2. GLYCOPYRROLATE\INDACATEROL\MOMETASONE FUROATE [Concomitant]
     Active Substance: GLYCOPYRROLATE\INDACATEROL\MOMETASONE FUROATE
     Indication: Ill-defined disorder
     Dosage: PLEASE RETURN YOUR ...,
     Route: 055
     Dates: start: 20240819
  3. HYDROMOL [Concomitant]
     Indication: Ill-defined disorder
     Dosage: TIME INTERVAL: 0.33333333 DAYS: APPLY THREE TIMES A DAY AS PER DERMATOLOGIST
     Dates: start: 20230616
  4. VENTOLIN [Concomitant]
     Active Substance: ALBUTEROL SULFATE
     Indication: Ill-defined disorder
     Dosage: UP TO FOUR TIMES A DAY AS NEEDED,
     Route: 055
     Dates: start: 20240723, end: 20240807
  5. IBANDRONIC ACID [Concomitant]
     Active Substance: IBANDRONIC ACID
     Indication: Ill-defined disorder
     Dosage: DURATION: 1.162 YEARS
     Dates: start: 20230616, end: 20240812
  6. FLUCONAZOLE [Concomitant]
     Active Substance: FLUCONAZOLE
     Indication: Ill-defined disorder
     Dosage: USE AS DIRECTED,
     Dates: start: 20240723, end: 20240724
  7. ROSUVASTATIN [Concomitant]
     Active Substance: ROSUVASTATIN\ROSUVASTATIN CALCIUM
     Indication: Ill-defined disorder
     Dates: start: 20240514
  8. COTRIMOXAZOLE [Concomitant]
     Active Substance: SULFAMETHOXAZOLE\TRIMETHOPRIM
     Indication: Ill-defined disorder
     Dosage: FOR 7 DAYS,
     Dates: start: 20240729, end: 20240805
  9. AMOXICILLIN\CLAVULANIC ACID [Concomitant]
     Active Substance: AMOXICILLIN\CLAVULANIC ACID
     Indication: Ill-defined disorder
     Dosage: TIME INTERVAL: 0.33333333 DAYS
     Dates: start: 20240715, end: 20240722
  10. DICLOFENAC DIETHYLAMINE [Concomitant]
     Active Substance: DICLOFENAC DIETHYLAMINE
     Indication: Ill-defined disorder
     Dosage: TIME INTERVAL: 0.33333333 DAYS: APPLY 3 TIMES/DAY
     Dates: start: 20240312
  11. PREDNISOLONE [Concomitant]
     Active Substance: PREDNISOLONE
     Indication: Ill-defined disorder
     Dosage: FOR FIVE DAYS,
     Dates: start: 20240814, end: 20240819
  12. OMEPRAZOLE [Concomitant]
     Active Substance: OMEPRAZOLE
     Indication: Ill-defined disorder
     Dates: start: 20240216
  13. COCODAMOL [Concomitant]
     Active Substance: ACETAMINOPHEN\CODEINE PHOSPHATE
     Indication: Ill-defined disorder
     Dosage: TAKE 1 OR 2 4 TIMES/DAY
     Dates: start: 20240514
  14. SERETIDE [Concomitant]
     Active Substance: FLUTICASONE PROPIONATE\SALMETEROL XINAFOATE
     Indication: Ill-defined disorder
     Dosage: ONCE/ TWICE DAILY
     Route: 055
     Dates: start: 20240514
  15. ALBUTEROL [Concomitant]
     Active Substance: ALBUTEROL
     Indication: Ill-defined disorder
     Dosage: INHALE ONE OR TWO DOSES UP TO FOUR TIMES A DAY ...
     Route: 055
     Dates: start: 20240410
  16. FLUTICASONE FUROATE\VILANTEROL TRIFENATATE [Concomitant]
     Active Substance: FLUTICASONE FUROATE\VILANTEROL TRIFENATATE
     Indication: Ill-defined disorder
     Route: 055
     Dates: start: 20240723
  17. DYMISTA [Concomitant]
     Active Substance: AZELASTINE HYDROCHLORIDE\FLUTICASONE PROPIONATE
     Indication: Ill-defined disorder
     Dosage: PUFF
     Route: 055
     Dates: start: 20230821

REACTIONS (2)
  - Nightmare [Unknown]
  - Mood altered [Unknown]

NARRATIVE: CASE EVENT DATE: 20240819
